FAERS Safety Report 13230958 (Version 1)
Quarter: 2017Q1

REPORT INFORMATION
  Report Type: Spontaneous
  Country: US (occurrence: US)
  Receive Date: 20170214
  Receipt Date: 20170214
  Transmission Date: 20170428
  Serious: No
  Sender: FDA-Public Use
  Company Number: US-BAYER-2017-028982

PATIENT
  Age: 5 Year
  Sex: Male
  Weight: 27.21 kg

DRUGS (3)
  1. CLARITIN [Suspect]
     Active Substance: LORATADINE
     Indication: COUGH
  2. CLARITIN [Suspect]
     Active Substance: LORATADINE
     Indication: HYPERSENSITIVITY
     Dosage: 1 ALMOST EVERY DAY
     Dates: start: 2015
  3. CLARITIN [Suspect]
     Active Substance: LORATADINE
     Indication: NASOPHARYNGITIS

REACTIONS (4)
  - Off label use [None]
  - Patient dissatisfaction with treatment [None]
  - Product use issue [Unknown]
  - Therapeutic response unexpected [Unknown]
